FAERS Safety Report 8607944 (Version 4)
Quarter: 2014Q1

REPORT INFORMATION
  Report Type: Spontaneous
  Country: US (occurrence: US)
  Receive Date: 20120611
  Receipt Date: 20140114
  Transmission Date: 20141002
  Serious: Yes (Disabling, Other)
  Sender: FDA-Public Use
  Company Number: US-ASTRAZENECA-2012SE35880

PATIENT
  Age: 39 Year
  Sex: Male

DRUGS (20)
  1. NEXIUM [Suspect]
     Indication: GASTROOESOPHAGEAL REFLUX DISEASE
     Route: 048
     Dates: start: 20070820, end: 20100429
  2. NEXIUM [Suspect]
     Indication: DYSPEPSIA
     Route: 048
     Dates: start: 20070820, end: 20100429
  3. NEXIUM [Suspect]
     Indication: GASTROOESOPHAGEAL REFLUX DISEASE
     Route: 048
     Dates: start: 2007, end: 201004
  4. NEXIUM [Suspect]
     Indication: DYSPEPSIA
     Route: 048
     Dates: start: 2007, end: 201004
  5. HYDROCODONE/APAP [Concomitant]
     Dosage: 7.5/500 MG
     Dates: start: 20070820
  6. DICYCLOMINE [Concomitant]
     Dates: start: 20070822
  7. AMLODIPINE/BENAZE [Concomitant]
     Dosage: 10/20
     Dates: start: 20070912
  8. METOPROLOL TARTRATE [Concomitant]
     Dates: start: 20070912
  9. METOPROLOL TARTRATE [Concomitant]
  10. SIMVASTATIN [Concomitant]
     Dates: start: 20070912
  11. ASPIRIN EC [Concomitant]
     Dates: start: 20070912
  12. DEPAKOTE [Concomitant]
     Dates: start: 20071015
  13. DEPAKOTE [Concomitant]
  14. BUT/ASP/CAFF [Concomitant]
     Dosage: 50/325/40
     Dates: start: 20080908
  15. TUMS [Concomitant]
     Indication: DYSPEPSIA
     Dates: start: 1990
  16. ALKA-SELTZER/ASPIRIN [Concomitant]
     Indication: HEADACHE
     Dosage: TWICE
     Dates: start: 1993
  17. PEPTO-BISMOL [Concomitant]
     Dosage: AS NEEDED
  18. CHANTIX [Concomitant]
  19. AMLODIPINE [Concomitant]
  20. METRONIDAZOLE [Concomitant]

REACTIONS (6)
  - Convulsion [Unknown]
  - Lower limb fracture [Unknown]
  - Neoplasm malignant [Unknown]
  - Osteoporosis [Unknown]
  - Intervertebral disc protrusion [Unknown]
  - Patellofemoral pain syndrome [Unknown]
